FAERS Safety Report 4890147-8 (Version None)
Quarter: 2005Q4

REPORT INFORMATION
  Report Type: 
  Country: None (occurrence: None)
  Receive Date: 20051220
  Receipt Date: 20050928
  Transmission Date: 20060501
  Serious: Yes (Other)
  Sender: FDA-Public Use
  Company Number: 419458

PATIENT
  Age: 54 Year
  Sex: Female
  Weight: 75.3 kg

DRUGS (5)
  1. BONIVA [Suspect]
     Dosage: ORAL
     Route: 048
     Dates: start: 20050927
  2. MULTIVITAMINS W IRON + CALCIUM (CALCIUM/IRON NOS/MULITIVITAMINS NOS) [Concomitant]
  3. LEXAPRO [Concomitant]
  4. NEXIUM [Concomitant]
  5. CARAFATE [Concomitant]

REACTIONS (5)
  - BONE PAIN [None]
  - CHEST PAIN [None]
  - INFLUENZA LIKE ILLNESS [None]
  - MUSCULOSKELETAL CHEST PAIN [None]
  - SHOULDER PAIN [None]
